FAERS Safety Report 9442918 (Version 1)
Quarter: 2013Q3

REPORT INFORMATION
  Report Type: Spontaneous
  Country: US (occurrence: None)
  Receive Date: 20130805
  Receipt Date: 20130805
  Transmission Date: 20140515
  Serious: Yes (Other)
  Sender: FDA-Public Use
  Company Number: None

PATIENT
  Age: 52 Year
  Sex: 0

DRUGS (2)
  1. AZITHROMAX [Suspect]
     Indication: INFECTION
     Dosage: 5 TABS 1/DAY PO
     Route: 048
     Dates: start: 20130412, end: 20130416
  2. AZITHROMAX [Suspect]
     Indication: NASOPHARYNGITIS
     Dosage: 5 TABS 1/DAY PO
     Route: 048
     Dates: start: 20130412, end: 20130416

REACTIONS (3)
  - Parosmia [None]
  - Hyposmia [None]
  - Hypogeusia [None]
